FAERS Safety Report 5915625-1 (Version None)
Quarter: 2008Q4

REPORT INFORMATION
  Report Type: 
  Country: None (occurrence: None)
  Receive Date: 20081010
  Receipt Date: 20081002
  Transmission Date: 20090506
  Serious: Yes (Hospitalization)
  Sender: FDA-Public Use
  Company Number: EC-ELI_LILLY_AND_COMPANY-EC200810000630

PATIENT
  Age: 55 Year
  Sex: Male

DRUGS (1)
  1. EXENATIDE [Suspect]
     Dosage: UNK, UNKNOWN
     Route: 058

REACTIONS (5)
  - COLITIS [None]
  - DEHYDRATION [None]
  - DIARRHOEA [None]
  - GASTROINTESTINAL INFECTION [None]
  - WEIGHT DECREASED [None]
